FAERS Safety Report 5749488-4 (Version None)
Quarter: 2008Q2

REPORT INFORMATION
  Report Type: 
  Country: None (occurrence: None)
  Receive Date: 20080527
  Receipt Date: 20080513
  Transmission Date: 20081010
  Serious: Yes (Hospitalization)
  Sender: FDA-Public Use
  Company Number: B0470830B

PATIENT
  Age: 57 Year
  Sex: Female

DRUGS (2)
  1. LAPATINIB [Suspect]
     Dosage: 1250MG PER DAY
     Route: 048
     Dates: start: 20070228
  2. XELODA [Suspect]
     Dosage: 3000MG PER DAY
     Route: 065
     Dates: start: 20070416

REACTIONS (1)
  - PARONYCHIA [None]
